FAERS Safety Report 4639147-3 (Version None)
Quarter: 2005Q2

REPORT INFORMATION
  Report Type: 
  Country: None (occurrence: None)
  Receive Date: 20050419
  Receipt Date: 20050408
  Transmission Date: 20051028
  Serious: Yes (Hospitalization, Other)
  Sender: FDA-Public Use
  Company Number: JP-NOVOPROD-243477

PATIENT
  Age: 45 Year
  Sex: Male
  Weight: 58 kg

DRUGS (3)
  1. PENFILL 30R CHU [Suspect]
     Indication: INSULIN-REQUIRING TYPE II DIABETES MELLITUS
  2. GLIBENCLAMIDE [Concomitant]
  3. HUMULIN R [Suspect]
     Indication: INSULIN-REQUIRING TYPE II DIABETES MELLITUS

REACTIONS (3)
  - GAMMA-GLUTAMYLTRANSFERASE INCREASED [None]
  - HEPATITIS C ANTIBODY POSITIVE [None]
  - LIVER FUNCTION TEST ABNORMAL [None]
